FAERS Safety Report 4717248-9 (Version None)
Quarter: 2005Q3

REPORT INFORMATION
  Report Type: 
  Country: None (occurrence: None)
  Receive Date: 20050719
  Receipt Date: 20050713
  Transmission Date: 20060218
  Serious: Yes (Death)
  Sender: FDA-Public Use
  Company Number: PHBS2005DE10046

PATIENT
  Age: 62 Year
  Sex: Male

DRUGS (5)
  1. CYCLOSPORINE [Suspect]
     Indication: STEM CELL TRANSPLANT
     Route: 065
  2. METHOTREXATE [Suspect]
     Route: 065
  3. TREOSULFAN [Suspect]
     Dosage: 36 G/M2/D
  4. FLUDARABINE PHOSPHATE [Suspect]
     Dosage: 75 MG/M2
  5. ATGAM [Suspect]
     Dosage: 90 MG/M2

REACTIONS (13)
  - BLOOD BILIRUBIN INCREASED [None]
  - DRUG TOXICITY [None]
  - EPSTEIN-BARR VIRUS INFECTION [None]
  - HEPATITIS [None]
  - HERPES SIMPLEX [None]
  - LIVER DISORDER [None]
  - MALAISE [None]
  - MUCOSAL INFLAMMATION [None]
  - MULTI-ORGAN FAILURE [None]
  - PYREXIA [None]
  - RENAL FAILURE [None]
  - RESPIRATORY FAILURE [None]
  - TRANSAMINASES INCREASED [None]
